FAERS Safety Report 4378056-4 (Version None)
Quarter: 2004Q2

REPORT INFORMATION
  Report Type: 
  Country: None (occurrence: None)
  Receive Date: 20040609
  Receipt Date: 20040526
  Transmission Date: 20050107
  Serious: Yes (Death, Life-Threatening)
  Sender: FDA-Public Use
  Company Number: EWC040539178

PATIENT
  Age: 51 Year
  Sex: Male

DRUGS (5)
  1. XIGRIS (DROTRECOGIN ALFA (ACTIVATED) ) [Suspect]
     Indication: SEPSIS
     Dosage: 24 UG/KG/HR HOUR
     Dates: start: 20040505
  2. HEPARIN [Concomitant]
  3. NOREPINEPHRINE [Concomitant]
  4. DOBUTAMINE [Concomitant]
  5. CORTISONE [Concomitant]

REACTIONS (3)
  - ACTIVATED PARTIAL THROMBOPLASTIN TIME PROLONGED [None]
  - PROTHROMBIN LEVEL INCREASED [None]
  - THROMBOCYTOPENIA [None]
